FAERS Safety Report 4276633-2 (Version None)
Quarter: 2004Q1

REPORT INFORMATION
  Report Type: 
  Country: None (occurrence: None)
  Receive Date: 20040120
  Receipt Date: 20040110
  Transmission Date: 20041129
  Serious: Yes (Hospitalization)
  Sender: FDA-Public Use
  Company Number: 18825

PATIENT
  Age: 61 Year
  Sex: Male
  Weight: 83.9154 kg

DRUGS (4)
  1. NIASPAN [Suspect]
     Indication: LOW DENSITY LIPOPROTEIN INCREASED
     Dosage: 2250 MG QHS PO
     Route: 048
     Dates: start: 20031101, end: 20031208
  2. ALTACE [Suspect]
     Indication: CARDIAC DISORDER
     Dosage: 5 MG QD PO
     Route: 048
     Dates: end: 20031208
  3. METOPROLOL [Suspect]
     Indication: CARDIAC DISORDER
     Dosage: 50 MG BID PO
     Route: 048
  4. GLUCOTROL XL [Concomitant]

REACTIONS (3)
  - ASTHENIA [None]
  - BLOOD PRESSURE DECREASED [None]
  - DRUG INTERACTION [None]
